FAERS Safety Report 5236342-X (Version None)
Quarter: 2007Q1

REPORT INFORMATION
  Report Type: 
  Country: None (occurrence: None)
  Receive Date: 20061208
  Receipt Date: 20050725
  Transmission Date: 20070707
  Serious: Yes (Other)
  Sender: FDA-Public Use
  Company Number: 2005UW11034

PATIENT
  Age: 77 Year
  Sex: Female
  Weight: 85.728 kg

DRUGS (12)
  1. CRESTOR [Suspect]
  2. NITRO-BID [Concomitant]
  3. DIOVAN [Concomitant]
  4. MOBIC [Concomitant]
  5. PROTONIX [Concomitant]
  6. SYNTHROID [Concomitant]
  7. TOPROL-XL [Concomitant]
  8. FUROSEMIDE [Concomitant]
  9. NEURONTIN [Concomitant]
  10. LANOXIN [Concomitant]
  11. LANTUS [Concomitant]
  12. HUMALOG [Concomitant]

REACTIONS (3)
  - FLUID RETENTION [None]
  - MUSCLE SPASMS [None]
  - WEIGHT INCREASED [None]
